FAERS Safety Report 9927688 (Version 2)
Quarter: 2015Q4

REPORT INFORMATION
  Report Type: Report from Study
  Country: US (occurrence: US)
  Receive Date: 20140227
  Receipt Date: 20151118
  Transmission Date: 20160305
  Serious: Yes (Other)
  Sender: FDA-Public Use
  Company Number: US-ROCHE-1339200

PATIENT
  Sex: Female

DRUGS (2)
  1. AVASTIN [Suspect]
     Active Substance: BEVACIZUMAB
     Indication: NEOVASCULAR AGE-RELATED MACULAR DEGENERATION
     Dosage: OS
     Route: 065
     Dates: start: 20120813
  2. LUCENTIS [Suspect]
     Active Substance: RANIBIZUMAB
     Indication: NEOVASCULAR AGE-RELATED MACULAR DEGENERATION
     Dosage: MOST RECENT DOSE 27/JAN/2014
     Route: 050
     Dates: start: 20131028

REACTIONS (8)
  - Product use issue [Unknown]
  - Metamorphopsia [Unknown]
  - Eye irritation [Unknown]
  - Vision blurred [Unknown]
  - Vitreous floaters [Recovered/Resolved]
  - Iritis [Recovering/Resolving]
  - Cataract nuclear [Unknown]
  - Photopsia [Unknown]
